FAERS Safety Report 23857845 (Version 1)
Quarter: 2024Q2

REPORT INFORMATION
  Report Type: Spontaneous
  Country: US (occurrence: None)
  Receive Date: 20240514
  Receipt Date: 20240514
  Transmission Date: 20240716
  Serious: Yes (Life-Threatening, Hospitalization)
  Sender: FDA-Public Use
  Company Number: None

PATIENT
  Weight: 82 kg

DRUGS (1)
  1. DILTIAZEM HYDROCHLORIDE [Suspect]
     Active Substance: DILTIAZEM HYDROCHLORIDE
     Indication: Tachycardia
     Dosage: OTHER STRENGTH : 100MG/VIL;?
     Route: 042
     Dates: start: 20240208, end: 20240208

REACTIONS (6)
  - Hypotension [None]
  - Urticaria [None]
  - Rash pruritic [None]
  - Urticaria [None]
  - Unresponsive to stimuli [None]
  - Pulse absent [None]

NARRATIVE: CASE EVENT DATE: 20240208
